FAERS Safety Report 5827872-8 (Version None)
Quarter: 2008Q3

REPORT INFORMATION
  Report Type: 
  Country: None (occurrence: None)
  Receive Date: 20080730
  Receipt Date: 20080722
  Transmission Date: 20090109
  Serious: Yes (Death, Life-Threatening, Hospitalization)
  Sender: FDA-Public Use
  Company Number: FR-PFIZER INC-2008049860

PATIENT
  Sex: Female

DRUGS (14)
  1. AMLOR [Suspect]
     Indication: HYPERTENSION
     Route: 048
     Dates: start: 20080425, end: 20080501
  2. SECTRAL [Suspect]
     Indication: HYPERTENSION
     Route: 048
     Dates: start: 20080429, end: 20080501
  3. MOTILIUM ^JANSSEN^ [Concomitant]
     Route: 048
     Dates: start: 20080426, end: 20080505
  4. TAHOR [Concomitant]
  5. XALCOM [Concomitant]
  6. LANTUS [Concomitant]
  7. COAPROVEL [Concomitant]
  8. LASIX [Concomitant]
  9. CATAPRES [Concomitant]
  10. RILMENIDINE [Concomitant]
  11. EFFEXOR [Concomitant]
  12. ATARAX [Concomitant]
  13. BROMAZEPAM [Concomitant]
  14. DARBEPOETIN ALFA [Concomitant]

REACTIONS (2)
  - DERMATITIS BULLOUS [None]
  - DISSEMINATED INTRAVASCULAR COAGULATION [None]
